FAERS Safety Report 9090711 (Version 4)
Quarter: 2013Q3

REPORT INFORMATION
  Report Type: Report from Study
  Country: BR (occurrence: BR)
  Receive Date: 20130201
  Receipt Date: 20130828
  Transmission Date: 20140515
  Serious: Yes (Hospitalization, Other)
  Sender: FDA-Public Use
  Company Number: BR-ABBOTT-13P-020-1043318-00

PATIENT
  Age: 60 Year
  Sex: Female
  Weight: 47 kg

DRUGS (4)
  1. HUMIRA [Suspect]
     Indication: RHEUMATOID ARTHRITIS
     Route: 058
     Dates: start: 20120906
  2. PREDNISONE [Concomitant]
     Indication: ARTHRITIS
     Route: 048
     Dates: start: 2002
  3. DIOVAN [Concomitant]
     Indication: HYPERTENSION
     Route: 048
     Dates: start: 2006
  4. AZATHIOPRINE [Concomitant]
     Indication: LIVER DISORDER
     Route: 048
     Dates: start: 2011

REACTIONS (5)
  - Autoimmune hepatitis [Not Recovered/Not Resolved]
  - Splenitis [Recovering/Resolving]
  - Hepatitis [Recovering/Resolving]
  - Abdominal distension [Unknown]
  - Umbilical hernia [Not Recovered/Not Resolved]
